FAERS Safety Report 7208745-5 (Version None)
Quarter: 2011Q1

REPORT INFORMATION
  Report Type: 
  Country: None (occurrence: None)
  Receive Date: 20110104
  Receipt Date: 20101229
  Transmission Date: 20110831
  Serious: Yes (Other)
  Sender: FDA-Public Use
  Company Number: US-PFIZER INC-2010181595

PATIENT
  Sex: Female
  Weight: 57 kg

DRUGS (1)
  1. ZYVOX [Suspect]
     Indication: BACTERIAL INFECTION
     Dosage: UNK
     Dates: start: 20070101, end: 20070101

REACTIONS (1)
  - THYROID CANCER [None]
